FAERS Safety Report 8935313 (Version 1)
Quarter: 2012Q4

REPORT INFORMATION
  Report Type: 
  Country: SE (occurrence: SE)
  Receive Date: 20121129
  Receipt Date: 20121129
  Transmission Date: 20130627
  Serious: Yes (Other)
  Sender: FDA-Public Use
  Company Number: SE-GLAXOSMITHKLINE-B0848450A

PATIENT
  Age: 40 Year
  Sex: Male

DRUGS (7)
  1. TROBALT [Suspect]
     Indication: EPILEPSY
     Route: 065
     Dates: start: 201202
  2. CARBAMAZEPINE [Concomitant]
     Route: 065
  3. CLONAZEPAM [Concomitant]
     Route: 065
  4. ZONISAMIDE [Concomitant]
     Route: 065
  5. LACOSAMIDE [Concomitant]
     Route: 065
  6. LEVETIRACETAM [Concomitant]
     Route: 065
  7. UNKNOWN DRUG [Concomitant]
     Route: 065

REACTIONS (3)
  - Fatigue [Unknown]
  - Cognitive disorder [Unknown]
  - Impaired work ability [Unknown]
